FAERS Safety Report 8795620 (Version 2)
Quarter: 2012Q4

REPORT INFORMATION
  Report Type: 
  Country: BR (occurrence: BR)
  Receive Date: 20120919
  Receipt Date: 20120928
  Transmission Date: 20130627
  Serious: Yes (Other)
  Sender: FDA-Public Use
  Company Number: BR-ABBOTT-12P-020-0978627-00

PATIENT
  Age: 57 None
  Sex: Male
  Weight: 80 kg

DRUGS (4)
  1. HUMIRA [Suspect]
     Route: 058
     Dates: end: 20120826
  2. CALCORT [Concomitant]
     Indication: ARTHRITIS
     Route: 048
     Dates: end: 20120828
  3. CLOPIDROGEL [Concomitant]
     Route: 050
  4. SIMVASTATIN [Concomitant]
     Indication: PRODUCT USED FOR UNKNOWN INDICATION
     Route: 050

REACTIONS (20)
  - Brain stem stroke [Not Recovered/Not Resolved]
  - Dysphagia [Not Recovered/Not Resolved]
  - Balance disorder [Recovering/Resolving]
  - Wallenberg syndrome [Not Recovered/Not Resolved]
  - Diplopia [Not Recovered/Not Resolved]
  - Eyelid ptosis [Not Recovered/Not Resolved]
  - Pupils unequal [Not Recovered/Not Resolved]
  - Dizziness [Recovered/Resolved]
  - Petechiae [Not Recovered/Not Resolved]
  - Petechiae [Recovering/Resolving]
  - Petechiae [Recovering/Resolving]
  - Arthralgia [Recovering/Resolving]
  - Muscular weakness [Recovering/Resolving]
  - Sensory disturbance [Unknown]
  - Paraesthesia [Not Recovered/Not Resolved]
  - Mydriasis [Not Recovered/Not Resolved]
  - Miosis [Not Recovered/Not Resolved]
  - Cerebellar syndrome [Unknown]
  - Discomfort [Unknown]
  - Skin disorder [Unknown]
